FAERS Safety Report 8581095-0 (Version None)
Quarter: 2012Q3

REPORT INFORMATION
  Report Type: 
  Country: None (occurrence: None)
  Receive Date: 20120809
  Receipt Date: 20120727
  Transmission Date: 20120928
  Serious: No
  Sender: FDA-Public Use
  Company Number: US-BAYER-2012-076655

PATIENT
  Age: 83 Year
  Sex: Female
  Weight: 85.261 kg

DRUGS (6)
  1. ALEVE (CAPLET) [Suspect]
     Indication: ARTHRITIS
     Dosage: 3 DF QD
     Route: 048
  2. INDERIL [Concomitant]
  3. PROXTEN [Concomitant]
  4. SLEEPING PILL [Concomitant]
  5. OXYBUTYNIN CHLORIDE [Concomitant]
  6. OXYCODONE HCL AND ACETAMINOPHEN [Concomitant]

REACTIONS (1)
  - ARTHRITIS [None]
